FAERS Safety Report 6753798-1 (Version None)
Quarter: 2010Q2

REPORT INFORMATION
  Report Type: 
  Country: None (occurrence: None)
  Receive Date: 20100601
  Receipt Date: 20100526
  Transmission Date: 20101027
  Serious: Yes (Death)
  Sender: FDA-Public Use
  Company Number: 2010SP012412

PATIENT
  Age: 42 Year
  Sex: Female

DRUGS (3)
  1. REMERON [Suspect]
     Indication: DEPRESSED MOOD
     Dosage: 15 MG;QD;PO
     Route: 048
     Dates: start: 20091221, end: 20091222
  2. REMERON [Suspect]
     Indication: SUICIDAL IDEATION
     Dosage: 15 MG;QD;PO
     Route: 048
     Dates: start: 20091221, end: 20091222
  3. MYSLEE [Concomitant]

REACTIONS (4)
  - COMPLETED SUICIDE [None]
  - DEPRESSED MOOD [None]
  - FALL [None]
  - LEUKOPLAKIA ORAL [None]
